FAERS Safety Report 7000540-5 (Version None)
Quarter: 2010Q3

REPORT INFORMATION
  Report Type: 
  Country: None (occurrence: None)
  Receive Date: 20100920
  Receipt Date: 20100527
  Transmission Date: 20110219
  Serious: Yes (Other)
  Sender: FDA-Public Use
  Company Number: US-ASTRAZENECA-2007UW05359

PATIENT
  Sex: Male

DRUGS (7)
  1. SEROQUEL [Suspect]
     Route: 048
     Dates: start: 20041105
  2. PAROXETINE HCL [Concomitant]
     Dosage: 40 MG 2 TABLETS DAILY
     Dates: start: 20041105
  3. RISPERDAL [Concomitant]
     Dates: start: 20041105
  4. IMIPRAMINE HCL [Concomitant]
     Dosage: 56/50 MG TAKE 3 TABLETS AT BED TIME
     Dates: start: 20041105
  5. TRICOR [Concomitant]
     Dosage: 145 MG-160 MG
     Dates: start: 20050328
  6. WELLBUTRIN XL [Concomitant]
     Dosage: 150 MG-300 MG
     Dates: start: 20050126
  7. ZOCOR [Concomitant]
     Dosage: 749/40 MG TAKE 1 TABLET DAILY
     Dates: start: 20050328

REACTIONS (3)
  - DIABETES MELLITUS [None]
  - KETOACIDOSIS [None]
  - PANCREATITIS [None]
